FAERS Safety Report 24852702 (Version 1)
Quarter: 2025Q1

REPORT INFORMATION
  Report Type: Spontaneous
  Country: US (occurrence: US)
  Receive Date: 20250116
  Receipt Date: 20250116
  Transmission Date: 20250409
  Serious: Yes (Other)
  Sender: ELI LILLY AND COMPANY
  Company Number: US-ELI_LILLY_AND_COMPANY-US202501005355

PATIENT
  Age: 56 Year
  Sex: Female

DRUGS (5)
  1. MOUNJARO [Suspect]
     Active Substance: TIRZEPATIDE
     Indication: Product used for unknown indication
     Route: 065
     Dates: start: 202403
  2. MOUNJARO [Suspect]
     Active Substance: TIRZEPATIDE
     Indication: Product used for unknown indication
     Route: 065
     Dates: start: 202403
  3. MOUNJARO [Suspect]
     Active Substance: TIRZEPATIDE
     Indication: Product used for unknown indication
     Route: 065
     Dates: start: 202403
  4. MOUNJARO [Suspect]
     Active Substance: TIRZEPATIDE
     Indication: Product used for unknown indication
     Route: 065
     Dates: start: 202403
  5. ANASTROZOLE [Concomitant]
     Active Substance: ANASTROZOLE
     Indication: Breast cancer

REACTIONS (1)
  - Retinal tear [Unknown]

NARRATIVE: CASE EVENT DATE: 20240604
